FAERS Safety Report 7540195-4 (Version None)
Quarter: 2011Q2

REPORT INFORMATION
  Report Type: 
  Country: None (occurrence: None)
  Receive Date: 20110610
  Receipt Date: 20110606
  Transmission Date: 20111010
  Serious: Yes (Other)
  Sender: FDA-Public Use
  Company Number: US-JNJFOC-20100804149

PATIENT
  Sex: Female

DRUGS (9)
  1. LEVAQUIN [Suspect]
     Route: 048
     Dates: start: 20050101, end: 20091231
  2. CIPROFLOXACIN [Suspect]
     Route: 048
  3. PREDNISONE [Concomitant]
     Indication: PRODUCT USED FOR UNKNOWN INDICATION
     Route: 065
  4. LEVAQUIN [Suspect]
     Indication: SINUSITIS
     Route: 048
     Dates: start: 20071213
  5. LEVAQUIN [Suspect]
     Indication: URINARY TRACT INFECTION
     Route: 048
     Dates: start: 20071213
  6. CIPROFLOXACIN [Suspect]
     Indication: PRODUCT USED FOR UNKNOWN INDICATION
     Route: 042
  7. LEVAQUIN [Suspect]
     Indication: BRONCHITIS
     Route: 048
     Dates: start: 20071213
  8. LEVAQUIN [Suspect]
     Route: 048
     Dates: start: 20050101, end: 20091231
  9. LEVAQUIN [Suspect]
     Route: 048
     Dates: start: 20050101, end: 20091231

REACTIONS (1)
  - ROTATOR CUFF SYNDROME [None]
